FAERS Safety Report 18101609 (Version 1)
Quarter: 2020Q3

REPORT INFORMATION
  Report Type: Spontaneous
  Country: ES (occurrence: ES)
  Receive Date: 20200801
  Receipt Date: 20200801
  Transmission Date: 20201103
  Serious: Yes (Other)
  Sender: FDA-Public Use
  Company Number: ES-SA-2020SA197739

PATIENT

DRUGS (2)
  1. INSULIN ASPART [Suspect]
     Active Substance: INSULIN ASPART
     Indication: TYPE 1 DIABETES MELLITUS
     Dosage: UNK
     Route: 065
  2. LANTUS [Suspect]
     Active Substance: INSULIN GLARGINE
     Indication: TYPE 1 DIABETES MELLITUS
     Dosage: 19 IU
     Route: 058

REACTIONS (12)
  - Hypercholesterolaemia [Recovering/Resolving]
  - Body height decreased [Unknown]
  - Weight fluctuation [Unknown]
  - Hypoglycaemia [Recovered/Resolved]
  - Drug ineffective [Unknown]
  - Hypothyroidism [Recovering/Resolving]
  - Macular degeneration [Unknown]
  - Hyperparathyroidism [Recovering/Resolving]
  - Hyperthyroidism [Recovering/Resolving]
  - Cataract [Unknown]
  - Uveitis [Unknown]
  - Hyperglycaemia [Unknown]
